FAERS Safety Report 7334931-X (Version None)
Quarter: 2011Q1

REPORT INFORMATION
  Report Type: 
  Country: None (occurrence: None)
  Receive Date: 20110307
  Receipt Date: 20080522
  Transmission Date: 20110831
  Serious: Yes (Other)
  Sender: FDA-Public Use
  Company Number: NO-NOVOPROD-274900

PATIENT
  Sex: Female

DRUGS (5)
  1. NOVORAPID PENFILL 3.0 ML [Suspect]
     Indication: TYPE 1 DIABETES MELLITUS
     Route: 058
     Dates: start: 20070911, end: 20070924
  2. LANTUS [Concomitant]
     Dosage: 26 IU, QD
     Route: 058
     Dates: start: 20070919
  3. AVASTIN [Concomitant]
  4. HUMALOG [Concomitant]
     Dosage: 50 IU, QD
     Route: 058
     Dates: start: 20070925
  5. INSULIN DETEMIR PENFILL [Suspect]
     Indication: TYPE 1 DIABETES MELLITUS
     Route: 058
     Dates: start: 20070911, end: 20070919

REACTIONS (1)
  - RETINOPATHY PROLIFERATIVE [None]
